FAERS Safety Report 18583044 (Version 1)
Quarter: 2020Q4

REPORT INFORMATION
  Report Type: Report from Study
  Country: US (occurrence: US)
  Receive Date: 20201206
  Receipt Date: 20201206
  Transmission Date: 20210114
  Serious: Yes (Hospitalization)
  Sender: FDA-Public Use
  Company Number: US-JNJFOC-20201202993

PATIENT
  Age: 74 Year
  Sex: Female

DRUGS (6)
  1. PREGABALIN. [Concomitant]
     Active Substance: PREGABALIN
  2. ATORVASTATIN [Concomitant]
     Active Substance: ATORVASTATIN
  3. STELARA [Suspect]
     Active Substance: USTEKINUMAB
     Indication: CROHN^S DISEASE
     Route: 058
     Dates: start: 20190403
  4. STELARA [Suspect]
     Active Substance: USTEKINUMAB
  5. TELMISARTAN. [Concomitant]
     Active Substance: TELMISARTAN
  6. BUDESONIDE. [Concomitant]
     Active Substance: BUDESONIDE

REACTIONS (4)
  - Inappropriate schedule of product administration [Unknown]
  - Colectomy [Not Recovered/Not Resolved]
  - Cholecystectomy [Not Recovered/Not Resolved]
  - Off label use [Unknown]

NARRATIVE: CASE EVENT DATE: 201904
